FAERS Safety Report 7792245-8 (Version None)
Quarter: 2011Q4

REPORT INFORMATION
  Report Type: 
  Country: None (occurrence: None)
  Receive Date: 20111003
  Receipt Date: 20110920
  Transmission Date: 20120403
  Serious: Yes (Hospitalization, Other)
  Sender: FDA-Public Use
  Company Number: US-ELI_LILLY_AND_COMPANY-US201106004586

PATIENT
  Sex: Female

DRUGS (15)
  1. LEVOTHYROXINE [Concomitant]
  2. TRAVATAN [Concomitant]
  3. VITAMIN D [Concomitant]
     Dosage: 5000 IU, UNK
  4. MIRAPEX [Concomitant]
  5. XYZAL [Concomitant]
  6. NEXIUM [Concomitant]
  7. VITAMIN D [Concomitant]
     Dosage: 2500 IU, UNK
  8. ATENOLOL [Concomitant]
  9. DIGOXIN [Concomitant]
  10. AMLODIPINE [Concomitant]
  11. LISINOPRIL [Concomitant]
  12. FORTEO [Suspect]
     Indication: OSTEOPOROSIS
     Dosage: 20 UG, QD
  13. FORTEO [Suspect]
     Dosage: 20 UG, QD
  14. HYDROCORTISONE [Concomitant]
  15. NITROGLYCERIN [Concomitant]

REACTIONS (9)
  - HAND FRACTURE [None]
  - HEART RATE DECREASED [None]
  - CHEST PAIN [None]
  - HEART RATE INCREASED [None]
  - FALL [None]
  - OEDEMA PERIPHERAL [None]
  - CARDIAC FIBRILLATION [None]
  - HYPERHIDROSIS [None]
  - DIZZINESS [None]
